FAERS Safety Report 8158095-8 (Version None)
Quarter: 2012Q1

REPORT INFORMATION
  Report Type: 
  Country: None (occurrence: None)
  Receive Date: 20120222
  Receipt Date: 20120217
  Transmission Date: 20120608
  Serious: Yes (Death)
  Sender: FDA-Public Use
  Company Number: PHEH2012US004187

PATIENT
  Sex: Male
  Weight: 126 kg

DRUGS (29)
  1. RECLAST [Suspect]
     Indication: OSTEOPOROSIS
     Dosage: 5 MG, UNK
     Route: 042
     Dates: start: 20110209
  2. ALPRAZOLAM [Concomitant]
     Dosage: 1 MG, UNK
     Route: 048
  3. ENALAPRIL MALEATE [Concomitant]
     Dosage: 10 MG, UNK
  4. NOVOLOG [Concomitant]
     Dosage: 100 U/ML, UNK
     Route: 058
  5. HIBICLENS [Concomitant]
     Dosage: APPLY ALL OVER BODY TWICE A WEEK.
  6. KETOCONAZOLE [Concomitant]
     Dosage: UNK UKN, UNK
  7. METOLAZONE [Concomitant]
     Dosage: 5 MG, UNK
  8. METOPROLOL SUCCINATE [Concomitant]
     Dosage: 25 MG, UNK
  9. MORPHINE [Concomitant]
     Dosage: 100 MG, UNK
     Route: 048
  10. VICODIN HP [Concomitant]
     Dosage: 660 MG, UNK
  11. CALCIUM W/VITAMIN D NOS [Concomitant]
     Dosage: 600 MG, UNK
  12. ARMODAFINIL [Concomitant]
     Dosage: 200 MG, UNK
     Route: 048
  13. FLUOCINONIDE [Concomitant]
     Dosage: 0.05 %, UNK
  14. ULORIC [Concomitant]
     Dosage: 80 MG, UNK
  15. XOPENEX [Concomitant]
     Dosage: 0.31 MG/ML, UNK
  16. VITAMIN D [Concomitant]
     Dosage: 400 IU, UNK
     Route: 048
  17. TEMSIROLIMUS [Concomitant]
     Dosage: 5 MG, UNK
     Route: 048
  18. ATARAX [Concomitant]
     Dosage: 10 MG, UNK
     Route: 048
  19. COUMADIN [Concomitant]
     Dosage: 2 MG, UNK
     Route: 048
  20. LASIX [Concomitant]
     Dosage: 40 MG, UNK
  21. ZOFRAN [Concomitant]
     Dosage: 4 MG, UNK
     Route: 048
  22. LANTUS [Concomitant]
     Dosage: 100 U, UNK
  23. SOMA [Concomitant]
     Dosage: 350 MG, UNK
  24. TAMSULOSIN HCL [Concomitant]
     Dosage: 0.4 MG, UNK
     Route: 048
  25. ANDROGEL [Concomitant]
     Dosage: 2.5 G, UNK
  26. CLINDAMYCIN [Concomitant]
     Dosage: 1 %, LOTION
  27. KETOCONAZOLE [Concomitant]
     Dosage: UNK UKN, UNK
  28. VITAMIN D [Concomitant]
     Dosage: 50000 IU, UNK
  29. ANTIHISTAMINICS [Concomitant]
     Dosage: UNK UKN, UNK

REACTIONS (1)
  - DEATH [None]
